FAERS Safety Report 4700232-9 (Version None)
Quarter: 2005Q2

REPORT INFORMATION
  Report Type: 
  Country: None (occurrence: None)
  Receive Date: 20050623
  Receipt Date: 20050613
  Transmission Date: 20051028
  Serious: Yes (Hospitalization)
  Sender: FDA-Public Use
  Company Number: ENTC2005-0165

PATIENT
  Sex: Male

DRUGS (1)
  1. STALEVO 100 [Suspect]
     Dosage: SEE IMAGE

REACTIONS (1)
  - CEREBROVASCULAR ACCIDENT [None]
